FAERS Safety Report 9417138 (Version 1)
Quarter: 2013Q3

REPORT INFORMATION
  Report Type: Spontaneous
  Country: JP (occurrence: JP)
  Receive Date: 20130722
  Receipt Date: 20130722
  Transmission Date: 20140515
  Serious: Yes (Other)
  Sender: FDA-Public Use
  Company Number: TCI2013A04219

PATIENT
  Age: 73 Year
  Sex: Male

DRUGS (2)
  1. TAKEPRON OD TABLETS 15 (LANSOPRAZOLE) [Suspect]
     Route: 048
     Dates: start: 201201, end: 201201
  2. NESINA [Suspect]
     Route: 048
     Dates: start: 201201, end: 201201

REACTIONS (2)
  - Toxic epidermal necrolysis [None]
  - Toxic epidermal necrolysis [None]
